FAERS Safety Report 13748334 (Version 3)
Quarter: 2017Q3

REPORT INFORMATION
  Report Type: Spontaneous
  Country: US (occurrence: US)
  Receive Date: 20170713
  Receipt Date: 20170906
  Transmission Date: 20171127
  Serious: No
  Sender: FDA-Public Use
  Company Number: US-PFIZER INC-2017301394

PATIENT
  Age: 48 Year
  Sex: Male

DRUGS (3)
  1. SUTENT [Suspect]
     Active Substance: SUNITINIB MALATE
     Indication: RENAL CANCER
     Dosage: 50 MG, 1X/DAY
     Route: 048
  2. SUTENT [Suspect]
     Active Substance: SUNITINIB MALATE
     Dosage: 50 MG, CYCLIC (DAILY X 2W, OFF 1 WK)
     Route: 048
     Dates: start: 20170711
  3. SUTENT [Suspect]
     Active Substance: SUNITINIB MALATE
     Dosage: 50 MG, CYCLIC (DAILY FOR 2 WEEKS)
     Route: 048
     Dates: start: 20170620

REACTIONS (7)
  - Fatigue [Unknown]
  - Ageusia [Unknown]
  - Pain [Unknown]
  - Hypertension [Unknown]
  - Glossodynia [Unknown]
  - Oral pain [Unknown]
  - Decreased appetite [Unknown]

NARRATIVE: CASE EVENT DATE: 20170630
